FAERS Safety Report 14285347 (Version 2)
Quarter: 2019Q1

REPORT INFORMATION
  Report Type: Spontaneous
  Country: US (occurrence: US)
  Receive Date: 20171214
  Receipt Date: 20190104
  Transmission Date: 20190417
  Serious: No
  Sender: FDA-Public Use
  Company Number: US-PFIZER INC-2017463691

PATIENT
  Age: 60 Year
  Sex: Female
  Weight: 146 kg

DRUGS (1)
  1. XELJANZ XR [Suspect]
     Active Substance: TOFACITINIB CITRATE
     Indication: RHEUMATOID ARTHRITIS
     Dosage: 11 MG, UNK

REACTIONS (7)
  - Weight increased [Unknown]
  - Gait disturbance [Unknown]
  - Anaemia [Unknown]
  - Bronchitis [Not Recovered/Not Resolved]
  - Product dose omission [Unknown]
  - Alopecia [Unknown]
  - Malaise [Recovered/Resolved]

NARRATIVE: CASE EVENT DATE: 201812
